FAERS Safety Report 8427899-6 (Version None)
Quarter: 2012Q2

REPORT INFORMATION
  Report Type: 
  Country: None (occurrence: None)
  Receive Date: 20120611
  Receipt Date: 20120531
  Transmission Date: 20120825
  Serious: Yes (Other)
  Sender: FDA-Public Use
  Company Number: US-ASTRAZENECA-2012SE24835

PATIENT
  Age: 55 Year
  Sex: Female

DRUGS (10)
  1. SEROQUEL [Suspect]
     Route: 048
  2. SEROQUEL [Suspect]
     Indication: BIPOLAR DISORDER
     Route: 048
     Dates: start: 20080101
  3. SEROQUEL [Suspect]
     Route: 048
  4. LEXAPRO [Concomitant]
  5. SEROQUEL [Suspect]
     Route: 048
  6. SEROQUEL [Suspect]
     Route: 048
  7. SEROQUEL [Suspect]
     Route: 048
  8. VALIUM [Concomitant]
  9. SEROQUEL [Suspect]
     Indication: SLEEP DISORDER
     Route: 048
     Dates: start: 20080101
  10. SEROQUEL [Suspect]
     Route: 048

REACTIONS (9)
  - DRUG INTOLERANCE [None]
  - INSOMNIA [None]
  - DEPRESSION [None]
  - ABDOMINAL DISCOMFORT [None]
  - MALAISE [None]
  - MENISCUS LESION [None]
  - JOINT INJURY [None]
  - DIARRHOEA [None]
  - FEELING ABNORMAL [None]
